FAERS Safety Report 6861433-7 (Version None)
Quarter: 2010Q3

REPORT INFORMATION
  Report Type: 
  Country: None (occurrence: None)
  Receive Date: 20100720
  Receipt Date: 20100713
  Transmission Date: 20110219
  Serious: Yes (Other)
  Sender: FDA-Public Use
  Company Number: PT-AMGEN-KDL399468

PATIENT
  Sex: Male

DRUGS (7)
  1. NPLATE [Suspect]
     Indication: IDIOPATHIC THROMBOCYTOPENIC PURPURA
     Route: 058
     Dates: start: 20100215, end: 20100330
  2. NERISONA [Suspect]
  3. IMMU-G [Concomitant]
  4. DONNATAL [Concomitant]
  5. ACENOCOUMAROL [Concomitant]
  6. DANAZOL [Concomitant]
  7. ZITHROMAX [Concomitant]

REACTIONS (5)
  - ECZEMA [None]
  - EXCORIATION [None]
  - RASH PRURITIC [None]
  - SKIN LESION [None]
  - SKIN REACTION [None]
